FAERS Safety Report 24310459 (Version 2)
Quarter: 2024Q4

REPORT INFORMATION
  Report Type: Report from Study
  Country: US (occurrence: US)
  Receive Date: 20240912
  Receipt Date: 20241010
  Transmission Date: 20250114
  Serious: Yes (Death)
  Sender: JOHNSON AND JOHNSON
  Company Number: US-JNJFOC-20240924220

PATIENT
  Age: 62 Year
  Sex: Male

DRUGS (2)
  1. SPRAVATO [Suspect]
     Active Substance: ESKETAMINE
     Indication: Depression
     Dosage: ^56 MG, 11 TOTAL DOSES (12 VISITS)^
     Dates: start: 20221205, end: 20230117
  2. SPRAVATO [Suspect]
     Active Substance: ESKETAMINE
     Dosage: ^1 TOTAL DOSE^
     Dates: start: 20240725, end: 20240725

REACTIONS (1)
  - Death [Fatal]
